FAERS Safety Report 5420616-3 (Version None)
Quarter: 2007Q3

REPORT INFORMATION
  Report Type: 
  Country: None (occurrence: None)
  Receive Date: 20070816
  Receipt Date: 20070809
  Transmission Date: 20080115
  Serious: Yes (Hospitalization)
  Sender: FDA-Public Use
  Company Number: 13872494

PATIENT
  Sex: Male

DRUGS (1)
  1. NALTREXONE HYDROCHLORIDE [Suspect]

REACTIONS (1)
  - THROMBOSIS [None]
